FAERS Safety Report 14952708 (Version 2)
Quarter: 2020Q1

REPORT INFORMATION
  Report Type: Spontaneous
  Country: FR (occurrence: FR)
  Receive Date: 20180530
  Receipt Date: 20200102
  Transmission Date: 20200409
  Serious: Yes (Other)
  Sender: FDA-Public Use
  Company Number: FR-MYLANLABS-2018M1034094

PATIENT
  Age: 32 Year
  Sex: Male

DRUGS (2)
  1. FORMOTEROL [Suspect]
     Active Substance: FORMOTEROL
     Indication: PRODUCT USED FOR UNKNOWN INDICATION
     Dosage: 1 DF, UNK, INHALATION POWDER, HARD CAPSULE
     Route: 055
     Dates: start: 2013
  2. FORMOTEROL [Suspect]
     Active Substance: FORMOTEROL
     Indication: PRODUCT USED FOR UNKNOWN INDICATION
     Dosage: UNK UNK, UNKNOWN FREQ, POWDER (EXCEPT DUSTING POWDER)
     Route: 065

REACTIONS (3)
  - Foreign body aspiration [Unknown]
  - Device malfunction [Unknown]
  - Incorrect dose administered [Unknown]
